FAERS Safety Report 5244958-X (Version None)
Quarter: 2007Q1

REPORT INFORMATION
  Report Type: 
  Country: None (occurrence: None)
  Receive Date: 20070221
  Receipt Date: 20070221
  Transmission Date: 20070707
  Serious: Yes (Hospitalization)
  Sender: FDA-Public Use
  Company Number: None

PATIENT
  Sex: Female
  Weight: 64.5 kg

DRUGS (2)
  1. CARBOPLATIN [Suspect]
     Dosage: 513 MG
  2. TAXOL [Suspect]
     Dosage: 310 MG

REACTIONS (1)
  - NEUTROPHIL COUNT DECREASED [None]
